FAERS Safety Report 7232722-1 (Version None)
Quarter: 2011Q1

REPORT INFORMATION
  Report Type: 
  Country: None (occurrence: None)
  Receive Date: 20110119
  Receipt Date: 20110111
  Transmission Date: 20110831
  Serious: Yes (Other)
  Sender: FDA-Public Use
  Company Number: GB-PFIZER INC-2011007691

PATIENT
  Age: 41 Year
  Sex: Male

DRUGS (1)
  1. PREGABALIN [Suspect]
     Indication: NEURALGIA
     Dosage: 300 MG, 2X/DAY

REACTIONS (2)
  - DRUG ABUSE [None]
  - DEPENDENCE [None]
